FAERS Safety Report 5390449-5 (Version None)
Quarter: 2007Q3

REPORT INFORMATION
  Report Type: 
  Country: None (occurrence: None)
  Receive Date: 20070718
  Receipt Date: 20070424
  Transmission Date: 20080115
  Serious: No
  Sender: FDA-Public Use
  Company Number: US-KINGPHARMUSA00001-K200700518

PATIENT

DRUGS (5)
  1. LEVOXYL [Suspect]
     Indication: HYPOTHYROIDISM
     Dosage: UNK, QD
     Route: 048
     Dates: start: 19920101
  2. WELCHOL [Suspect]
     Indication: BLOOD CHOLESTEROL INCREASED
     Dosage: UNK, QD
     Route: 048
     Dates: start: 20070401
  3. NEXIUM [Concomitant]
     Dosage: UNK, QD
     Route: 048
  4. VALIUM [Concomitant]
     Indication: VERTIGO
     Dosage: UNK, QD
     Route: 048
     Dates: start: 19970101
  5. MECLIZINE /00072801/ [Concomitant]
     Indication: VERTIGO
     Dosage: UNK, QD
     Route: 048
     Dates: start: 19970101

REACTIONS (5)
  - DIZZINESS [None]
  - HYPERSENSITIVITY [None]
  - PALPITATIONS [None]
  - THROAT TIGHTNESS [None]
  - VERTIGO [None]
